FAERS Safety Report 10042196 (Version 4)
Quarter: 2014Q2

REPORT INFORMATION
  Report Type: Report from Study
  Country: SE (occurrence: SE)
  Receive Date: 20140327
  Receipt Date: 20140430
  Transmission Date: 20141212
  Serious: Yes (Hospitalization, Other)
  Sender: FDA-Public Use
  Company Number: SE-JNJFOC-20130811415

PATIENT
  Age: 76 Year
  Sex: Male
  Weight: 83.2 kg

DRUGS (2)
  1. IBRUTINIB [Suspect]
     Route: 048
  2. IBRUTINIB [Suspect]
     Indication: MANTLE CELL LYMPHOMA
     Route: 048
     Dates: start: 20130529

REACTIONS (1)
  - Bladder transitional cell carcinoma [Not Recovered/Not Resolved]
